FAERS Safety Report 20999286 (Version 1)
Quarter: 2022Q2

REPORT INFORMATION
  Report Type: Spontaneous
  Country: US (occurrence: US)
  Receive Date: 20220623
  Receipt Date: 20220623
  Transmission Date: 20220720
  Serious: Yes (Life-Threatening, Hospitalization)
  Sender: FDA-Public Use
  Company Number: US-ELI_LILLY_AND_COMPANY-US202206008467

PATIENT
  Age: 27 Year
  Sex: Female
  Weight: 74.2 kg

DRUGS (5)
  1. BEBTELOVIMAB [Suspect]
     Active Substance: BEBTELOVIMAB
     Indication: COVID-19
     Dosage: 175 MG, SINGLE
     Route: 042
     Dates: start: 20220605, end: 20220605
  2. EPINEPHRINE HYDROCHLORIDE [Suspect]
     Active Substance: EPINEPHRINE HYDROCHLORIDE
     Indication: Flushing
     Dosage: 0.3 MG, UNKNOWN
     Route: 030
     Dates: start: 20220605
  3. EPINEPHRINE HYDROCHLORIDE [Suspect]
     Active Substance: EPINEPHRINE HYDROCHLORIDE
     Indication: Swollen tongue
  4. EPINEPHRINE HYDROCHLORIDE [Suspect]
     Active Substance: EPINEPHRINE HYDROCHLORIDE
     Indication: Pharyngeal swelling
  5. EPINEPHRINE HYDROCHLORIDE [Suspect]
     Active Substance: EPINEPHRINE HYDROCHLORIDE
     Indication: Lip swelling

REACTIONS (9)
  - Flushing [Unknown]
  - Swollen tongue [Recovered/Resolved]
  - Pharyngeal swelling [Unknown]
  - Lip swelling [Unknown]
  - Anxiety [Unknown]
  - Feeling jittery [Unknown]
  - Tachycardia [Unknown]
  - Hypertension [Unknown]
  - Infusion related reaction [Unknown]

NARRATIVE: CASE EVENT DATE: 20220606
